FAERS Safety Report 7546023-5 (Version None)
Quarter: 2011Q2

REPORT INFORMATION
  Report Type: 
  Country: None (occurrence: None)
  Receive Date: 20110614
  Receipt Date: 20110603
  Transmission Date: 20111010
  Serious: Yes (Death)
  Sender: FDA-Public Use
  Company Number: US-ACTELION-A-US2011-49386

PATIENT

DRUGS (10)
  1. PULMICORT [Concomitant]
  2. MICRO-K [Concomitant]
  3. THYROID TAB [Concomitant]
  4. ZAROXOLYN [Concomitant]
  5. TRACLEER [Suspect]
     Indication: PULMONARY ARTERIAL HYPERTENSION
     Dosage: 125 MG, BID
     Route: 048
     Dates: end: 20110429
  6. BROVANA [Concomitant]
  7. COUMADIN [Concomitant]
     Dosage: UNK
  8. TRACLEER [Suspect]
     Dosage: 62.5 MG, BID
     Route: 048
     Dates: start: 20100402
  9. METFORMIN HCL [Concomitant]
  10. LASIX [Concomitant]

REACTIONS (1)
  - MYOCARDIAL INFARCTION [None]
